FAERS Safety Report 20507129 (Version 1)
Quarter: 2022Q1

REPORT INFORMATION
  Report Type: Spontaneous
  Country: US (occurrence: US)
  Receive Date: 20220223
  Receipt Date: 20220223
  Transmission Date: 20220423
  Serious: No
  Sender: FDA-Public Use
  Company Number: US-PERRIGO-22US002718

PATIENT
  Sex: Male

DRUGS (1)
  1. DICLOFENAC SODIUM [Suspect]
     Active Substance: DICLOFENAC SODIUM
     Indication: Product used for unknown indication
     Dosage: UNKNOWN, SINGLE
     Route: 055
     Dates: start: 20220212, end: 20220212

REACTIONS (4)
  - Ocular hyperaemia [Recovered/Resolved]
  - Sinus disorder [Recovered/Resolved]
  - Throat irritation [Recovered/Resolved]
  - Headache [Recovered/Resolved]

NARRATIVE: CASE EVENT DATE: 20220212
